FAERS Safety Report 8924523 (Version 1)
Quarter: 2012Q4

REPORT INFORMATION
  Report Type: 
  Country: US (occurrence: US)
  Receive Date: 20121126
  Receipt Date: 20121126
  Transmission Date: 20130627
  Serious: Yes (Death, Other)
  Sender: FDA-Public Use
  Company Number: US-PFIZER INC-2012271172

PATIENT
  Age: 75 Year
  Sex: Male

DRUGS (1)
  1. VFEND [Suspect]
     Indication: LEUKEMIA
     Dosage: 200 mg, 2x/day
     Dates: start: 20120712

REACTIONS (2)
  - Pneumonia [Fatal]
  - Lung disorder [Unknown]
